FAERS Safety Report 6276170-X (Version None)
Quarter: 2009Q3

REPORT INFORMATION
  Report Type: 
  Country: None (occurrence: None)
  Receive Date: 20090717
  Receipt Date: 20090717
  Transmission Date: 20100115
  Serious: No
  Sender: FDA-Public Use
  Company Number: None

PATIENT
  Age: 61 Year
  Sex: Female
  Weight: 74.8435 kg

DRUGS (5)
  1. NORVASC [Suspect]
     Dosage: 10 MG 1 DAILY
     Dates: start: 20090626, end: 20090703
  2. ATIVAN [Concomitant]
  3. CRESTOR [Concomitant]
  4. PERCOCET [Concomitant]
  5. ATENOLOL [Suspect]

REACTIONS (7)
  - EYE DISORDER [None]
  - FATIGUE [None]
  - FEELING ABNORMAL [None]
  - GINGIVAL BLEEDING [None]
  - GINGIVAL PAIN [None]
  - JOINT SWELLING [None]
  - ORAL PAIN [None]
